FAERS Safety Report 8996005 (Version 1)
Quarter: 2013Q1

REPORT INFORMATION
  Report Type: Spontaneous
  Country: US (occurrence: US)
  Receive Date: 20130103
  Receipt Date: 20130103
  Transmission Date: 20140127
  Serious: No
  Sender: FDA-Public Use
  Company Number: US-ABBOTT-12P-163-0938303-00

PATIENT
  Age: 36 Year
  Sex: Female
  Weight: 81.72 kg

DRUGS (6)
  1. SYNTHROID [Suspect]
     Indication: HORMONE REPLACEMENT THERAPY
     Dates: start: 20120518
  2. IMITRIX [Concomitant]
     Indication: MIGRAINE
  3. NAPROSYN [Concomitant]
     Indication: PAIN
  4. PRILOSEC [Concomitant]
     Indication: GASTROOESOPHAGEAL REFLUX DISEASE
  5. ZYRTEC [Concomitant]
     Indication: HYPERSENSITIVITY
  6. ATIVAN [Concomitant]
     Indication: ANXIETY

REACTIONS (5)
  - Swollen tongue [Not Recovered/Not Resolved]
  - Hypersensitivity [Recovering/Resolving]
  - Rash [Recovering/Resolving]
  - Pruritus [Recovering/Resolving]
  - Rash [Recovering/Resolving]
